FAERS Safety Report 9165321 (Version 1)
Quarter: 2013Q1

REPORT INFORMATION
  Report Type: Spontaneous
  Country: UA (occurrence: None)
  Receive Date: 20130227
  Receipt Date: 20130227
  Transmission Date: 20140127
  Serious: Yes (Life-Threatening)
  Sender: FDA-Public Use
  Company Number: GPV/UKR/13/0028028

PATIENT
  Age: 60 Year
  Sex: Female

DRUGS (4)
  1. LEVOLET [Suspect]
     Indication: TUBERCULOSIS
     Route: 048
     Dates: start: 20120628
  2. PYRAZINAMIDE [Concomitant]
  3. RIFAMPICIN [Concomitant]
  4. KANAMYCIN [Concomitant]

REACTIONS (4)
  - Palpitations [None]
  - Asthenia [None]
  - Tremor [None]
  - Visual acuity reduced [None]
